FAERS Safety Report 9192526 (Version 8)
Quarter: 2020Q4

REPORT INFORMATION
  Report Type: Spontaneous
  Country: US (occurrence: US)
  Receive Date: 20130327
  Receipt Date: 20201119
  Transmission Date: 20210114
  Serious: No
  Sender: FDA-Public Use
  Company Number: US-PFIZER INC-2013095889

PATIENT
  Age: 41 Year
  Sex: Female

DRUGS (3)
  1. RELPAX [Suspect]
     Active Substance: ELETRIPTAN HYDROBROMIDE
     Indication: MIGRAINE
     Dosage: 40 MG, 1 TABLET AT ONSET OF HEADACHE, MAY REPEAT X 1 IN 24 HOURS
  2. RELPAX [Suspect]
     Active Substance: ELETRIPTAN HYDROBROMIDE
     Indication: HEADACHE
     Dosage: 40 MG, UNK (RECEIVED 12 TABLETS OF RELPAX 40MG INSTEAD OF 36 TABLETS)
  3. RELPAX [Suspect]
     Active Substance: ELETRIPTAN HYDROBROMIDE
     Dosage: UNK, AS NEEDED (AS NEEDED, 3X/DAY)

REACTIONS (3)
  - Off label use [Unknown]
  - Product dispensing error [Unknown]
  - Drug ineffective [Unknown]
